FAERS Safety Report 16077160 (Version 1)
Quarter: 2019Q1

REPORT INFORMATION
  Report Type: Spontaneous
  Country: FR (occurrence: FR)
  Receive Date: 20190315
  Receipt Date: 20190315
  Transmission Date: 20190418
  Serious: Yes (Hospitalization, Other)
  Sender: FDA-Public Use
  Company Number: FR-VELOXIS PHARMACEUTICALS, INC.-2018VELFR1430

PATIENT

DRUGS (25)
  1. ADOPORT [Suspect]
     Active Substance: TACROLIMUS
     Dosage: 8 MG, UNK
     Route: 048
     Dates: start: 20180517, end: 20180519
  2. ADOPORT [Suspect]
     Active Substance: TACROLIMUS
     Dosage: 10 MG, UNK
     Route: 048
     Dates: start: 20180731, end: 20180822
  3. DARBEPOETINA ALFA [Concomitant]
     Indication: PRODUCT USED FOR UNKNOWN INDICATION
     Dosage: UNK
     Route: 065
     Dates: start: 20180516
  4. VALGANCICLOVIR. [Concomitant]
     Active Substance: VALGANCICLOVIR
     Indication: PRODUCT USED FOR UNKNOWN INDICATION
     Dosage: UNK
     Route: 065
     Dates: start: 20180517
  5. ADOPORT [Suspect]
     Active Substance: TACROLIMUS
     Dosage: 18 MG, UNK
     Route: 048
     Dates: start: 20180524, end: 20180530
  6. MYFORTIC [Concomitant]
     Active Substance: MYCOPHENOLATE SODIUM
     Indication: PRODUCT USED FOR UNKNOWN INDICATION
     Dosage: UNK
     Route: 065
     Dates: start: 20180515
  7. ADOPORT [Suspect]
     Active Substance: TACROLIMUS
     Dosage: 14 MG, UNK
     Route: 048
     Dates: start: 20180520, end: 20180523
  8. ADOPORT [Suspect]
     Active Substance: TACROLIMUS
     Dosage: 8 MG, UNK
     Route: 048
     Dates: start: 20180609, end: 20180620
  9. CORTANCYL [Concomitant]
     Active Substance: PREDNISONE
     Indication: PRODUCT USED FOR UNKNOWN INDICATION
     Dosage: UNK
     Route: 065
     Dates: start: 20180520
  10. ADOPORT [Suspect]
     Active Substance: TACROLIMUS
     Dosage: 16 MG, UNK
     Route: 048
     Dates: start: 20180523, end: 20180524
  11. ADOPORT [Suspect]
     Active Substance: TACROLIMUS
     Dosage: 10 MG, UNK
     Route: 048
     Dates: start: 20180530, end: 20180609
  12. ADOPORT [Suspect]
     Active Substance: TACROLIMUS
     Dosage: 6 MG, UNK
     Route: 048
     Dates: start: 20180620, end: 20180625
  13. ADOPORT [Suspect]
     Active Substance: TACROLIMUS
     Dosage: 8 MG, UNK
     Route: 048
     Dates: start: 20181128
  14. ADOPORT [Suspect]
     Active Substance: TACROLIMUS
     Dosage: 14 MG, UNK
     Route: 048
     Dates: start: 20180516, end: 20180517
  15. ADOPORT [Suspect]
     Active Substance: TACROLIMUS
     Dosage: 8 MG, UNK
     Route: 048
     Dates: start: 20180718, end: 20180731
  16. INSULINE                           /01223402/ [Concomitant]
     Indication: PRODUCT USED FOR UNKNOWN INDICATION
     Dosage: UNK
     Route: 065
     Dates: start: 20180517
  17. ARANESP [Concomitant]
     Active Substance: DARBEPOETIN ALFA
     Indication: PRODUCT USED FOR UNKNOWN INDICATION
     Dosage: UNK
     Route: 065
     Dates: start: 20180516
  18. ADOPORT [Suspect]
     Active Substance: TACROLIMUS
     Dosage: 10 MG, UNK
     Route: 048
     Dates: start: 20180625, end: 20180718
  19. BACTRIM [Concomitant]
     Active Substance: SULFAMETHOXAZOLE\TRIMETHOPRIM
     Indication: PRODUCT USED FOR UNKNOWN INDICATION
     Dosage: UNK
     Route: 065
     Dates: start: 20180522
  20. BICARBONATE SODIUM [Concomitant]
     Active Substance: SODIUM BICARBONATE
     Indication: PRODUCT USED FOR UNKNOWN INDICATION
     Dosage: UNK
     Route: 065
     Dates: start: 20180517
  21. ENVARSUS XR [Suspect]
     Active Substance: TACROLIMUS
     Indication: PRODUCT USED FOR UNKNOWN INDICATION
     Dosage: UNK
     Route: 065
     Dates: start: 20181128
  22. ADOPORT [Suspect]
     Active Substance: TACROLIMUS
     Indication: RENAL TRANSPLANT
     Dosage: 8 MG, UNK
     Route: 048
     Dates: start: 20180515, end: 20180516
  23. ADOPORT [Suspect]
     Active Substance: TACROLIMUS
     Dosage: 9 MG, UNK
     Route: 048
     Dates: start: 20180519, end: 20180520
  24. ADOPORT [Suspect]
     Active Substance: TACROLIMUS
     Dosage: 8 MG, UNK
     Route: 048
     Dates: start: 20180822, end: 20181128
  25. ROVALCYTE [Concomitant]
     Active Substance: VALGANCICLOVIR HYDROCHLORIDE
     Indication: PRODUCT USED FOR UNKNOWN INDICATION
     Dosage: UNK
     Route: 065

REACTIONS (4)
  - Weight increased [Unknown]
  - Leukopenia [Not Recovered/Not Resolved]
  - Asthenia [Not Recovered/Not Resolved]
  - Renal impairment [Recovering/Resolving]

NARRATIVE: CASE EVENT DATE: 20180608
